FAERS Safety Report 25844776 (Version 1)
Quarter: 2025Q3

REPORT INFORMATION
  Report Type: Spontaneous
  Country: CA (occurrence: CA)
  Receive Date: 20250925
  Receipt Date: 20250925
  Transmission Date: 20251020
  Serious: Yes (Other)
  Sender: AUROBINDO
  Company Number: CA-AUROBINDO-AUR-APL-2025-049039

PATIENT
  Age: 79 Year
  Sex: Male

DRUGS (1)
  1. TRANEXAMIC ACID [Suspect]
     Active Substance: TRANEXAMIC ACID
     Indication: Product used for unknown indication
     Route: 051

REACTIONS (3)
  - Generalised tonic-clonic seizure [Recovered/Resolved]
  - Ischaemia [Recovered/Resolved]
  - Infarction [Recovered/Resolved]
